FAERS Safety Report 7581111-9 (Version None)
Quarter: 2011Q2

REPORT INFORMATION
  Report Type: 
  Country: None (occurrence: None)
  Receive Date: 20110629
  Receipt Date: 20110419
  Transmission Date: 20111010
  Serious: Yes (Other)
  Sender: FDA-Public Use
  Company Number: GB-ASTRAZENECA-2011SE13805

PATIENT
  Sex: Male
  Weight: 72.3 kg

DRUGS (3)
  1. ZOLADEX [Suspect]
     Route: 058
     Dates: start: 20110222
  2. ATENOLOL [Concomitant]
  3. ASPIRIN [Concomitant]

REACTIONS (2)
  - DRUG ADMINISTRATION ERROR [None]
  - MEDICAL DEVICE ENTRAPMENT [None]
